FAERS Safety Report 11024636 (Version 1)
Quarter: 2015Q2

REPORT INFORMATION
  Report Type: Spontaneous
  Country: PT (occurrence: PT)
  Receive Date: 20150414
  Receipt Date: 20150414
  Transmission Date: 20150821
  Serious: Yes (Other)
  Sender: FDA-Public Use
  Company Number: PT-ACCORD-029971

PATIENT
  Age: 71 Year
  Sex: Female

DRUGS (5)
  1. BORTEZOMIBE [Suspect]
     Active Substance: BORTEZOMIB
     Indication: CHEMOTHERAPY
  2. TACROLIMUS. [Suspect]
     Active Substance: TACROLIMUS
     Indication: RENAL TRANSPLANT
  3. DEXAMETHASONE. [Suspect]
     Active Substance: DEXAMETHASONE
     Indication: CHEMOTHERAPY
  4. MELPHALAN [Suspect]
     Active Substance: MELPHALAN
     Indication: CHEMOTHERAPY
  5. MYCOPHENOLIC ACID. [Suspect]
     Active Substance: MYCOPHENOLIC ACID
     Indication: RENAL TRANSPLANT

REACTIONS (3)
  - Complications of transplanted kidney [None]
  - Myeloma cast nephropathy [Unknown]
  - Post transplant lymphoproliferative disorder [Unknown]
